FAERS Safety Report 12509236 (Version 4)
Quarter: 2019Q4

REPORT INFORMATION
  Report Type: Spontaneous
  Country: GB (occurrence: GB)
  Receive Date: 20160629
  Receipt Date: 20191121
  Transmission Date: 20200122
  Serious: Yes (Death, Other)
  Sender: FDA-Public Use
  Company Number: GB-JNJFOC-20160620066

PATIENT

DRUGS (1)
  1. REMICADE [Suspect]
     Active Substance: INFLIXIMAB
     Indication: COLITIS ULCERATIVE
     Dosage: INFUSIONS OVER TWO HOURS, AT BASELINE AND 2 AND 6 WEEKS AFTER THE FIRST INFUSION
     Route: 042

REACTIONS (22)
  - Skin infection [Unknown]
  - Infusion related reaction [Unknown]
  - Hyperhidrosis [Unknown]
  - Sepsis [Fatal]
  - Treatment failure [Unknown]
  - Drug ineffective [Unknown]
  - Lower respiratory tract infection [Unknown]
  - Nervous system disorder [Unknown]
  - Basal cell carcinoma [Unknown]
  - Embolism venous [Unknown]
  - Colectomy [Unknown]
  - Musculoskeletal disorder [Unknown]
  - Psychiatric symptom [Unknown]
  - Gastrointestinal infection [Unknown]
  - Clostridium difficile infection [Unknown]
  - Hypersensitivity [Unknown]
  - Venous thrombosis [Unknown]
  - Feeling cold [Unknown]
  - Gastrointestinal disorder [Unknown]
  - Pulmonary sepsis [Fatal]
  - Feeling hot [Unknown]
  - Feeling abnormal [Unknown]
